FAERS Safety Report 10745832 (Version 3)
Quarter: 2015Q1

REPORT INFORMATION
  Report Type: Report from Study
  Country: CA (occurrence: CA)
  Receive Date: 20150128
  Receipt Date: 20150330
  Transmission Date: 20150721
  Serious: Yes (Other)
  Sender: FDA-Public Use
  Company Number: PHHY2015CA008667

PATIENT
  Sex: Female

DRUGS (1)
  1. AFINITOR [Suspect]
     Active Substance: EVEROLIMUS
     Indication: METASTATIC RENAL CELL CARCINOMA
     Dosage: UNK
     Route: 048

REACTIONS (5)
  - Cerebrovascular accident [Unknown]
  - Metastases to central nervous system [Unknown]
  - Intracranial tumour haemorrhage [Unknown]
  - Memory impairment [Unknown]
  - Malignant neoplasm progression [Unknown]
